FAERS Safety Report 9208885 (Version 1)
Quarter: 2013Q2

REPORT INFORMATION
  Report Type: Spontaneous
  Country: US (occurrence: US)
  Receive Date: 20130404
  Receipt Date: 20130404
  Transmission Date: 20140414
  Serious: Yes (Other)
  Sender: FDA-Public Use
  Company Number: US-JNJFOC-20130317795

PATIENT
  Age: 89 Year
  Sex: Male
  Weight: 81.65 kg

DRUGS (5)
  1. BENADRYL ALLERGY ULTRATAB [Suspect]
     Indication: SLEEP DISORDER THERAPY
     Dosage: 2 TABLETS AT NIGHT AS NEEDED
     Route: 048
     Dates: start: 20121001
  2. LOTREL [Concomitant]
     Indication: BLOOD PRESSURE
     Dosage: 5MG/20MG 1 DAY, SINCE 3 OR 4 YEARS
     Route: 065
  3. TOPROL [Concomitant]
     Indication: BLOOD PRESSURE
     Dosage: 3 OR 4 YEARS
     Route: 065
  4. TAMSULOSIN [Concomitant]
     Indication: PROSTATIC DISORDER
     Dosage: SINCE 1 YEAR
     Route: 065
  5. FINASTERIDE [Concomitant]
     Indication: PROSTATIC DISORDER
     Route: 065

REACTIONS (2)
  - Visual impairment [Not Recovered/Not Resolved]
  - Off label use [Unknown]
